FAERS Safety Report 5283684-8 (Version None)
Quarter: 2007Q2

REPORT INFORMATION
  Report Type: 
  Country: None (occurrence: None)
  Receive Date: 20070402
  Receipt Date: 20070320
  Transmission Date: 20071010
  Serious: Yes (Death)
  Sender: FDA-Public Use
  Company Number: BR-ROCHE-479031

PATIENT
  Age: 49 Year
  Sex: Female
  Weight: 59 kg

DRUGS (7)
  1. PEG-INTERFERON ALFA 2A (RO 25-8310) [Suspect]
     Route: 058
     Dates: start: 20060213, end: 20061224
  2. ERYTHROPOIETINE [Concomitant]
  3. OMEPRAZOLE [Concomitant]
  4. VITAMIN B COMPLEX CAP [Concomitant]
  5. PROPRANOLOL [Concomitant]
  6. FOLIC ACID [Concomitant]
  7. NIFEDIPINE [Concomitant]

REACTIONS (3)
  - MULTI-ORGAN FAILURE [None]
  - PNEUMONIA [None]
  - SEPSIS [None]
